FAERS Safety Report 4983449-8 (Version None)
Quarter: 2006Q2

REPORT INFORMATION
  Report Type: 
  Country: None (occurrence: None)
  Receive Date: 20060426
  Receipt Date: 20051123
  Transmission Date: 20061013
  Serious: Yes (Hospitalization, Disabling)
  Sender: FDA-Public Use
  Company Number: US-MERCK-0511USA04437

PATIENT
  Age: 32 Year
  Sex: Male
  Weight: 61 kg

DRUGS (8)
  1. VIOXX [Suspect]
     Indication: MUSCLE STRAIN
     Route: 048
     Dates: start: 20040420, end: 20040520
  2. VIOXX [Suspect]
     Route: 048
     Dates: start: 20030925, end: 20031025
  3. CIPROFLOXACIN HCL [Concomitant]
     Route: 065
  4. ZITHROMAX [Concomitant]
     Route: 065
  5. CLONAZEPAM [Concomitant]
     Indication: GENERALISED ANXIETY DISORDER
     Route: 065
     Dates: start: 20030130
  6. CLONAZEPAM [Concomitant]
     Indication: DEPRESSION
     Route: 065
     Dates: start: 20030130
  7. PREDNISONE [Concomitant]
     Route: 065
     Dates: start: 20031017
  8. ACETAMINOPHEN AND HYDROCODONE BITARTRATE [Concomitant]
     Route: 065

REACTIONS (10)
  - ANXIETY [None]
  - CEREBROVASCULAR ACCIDENT [None]
  - DIZZINESS [None]
  - HYPOACUSIS [None]
  - MULTIPLE SCLEROSIS [None]
  - NEPHROLITHIASIS [None]
  - SYNCOPE [None]
  - TESTICULAR SWELLING [None]
  - URINARY TRACT OBSTRUCTION [None]
  - VISUAL DISTURBANCE [None]
